FAERS Safety Report 5534293-4 (Version None)
Quarter: 2007Q4

REPORT INFORMATION
  Report Type: 
  Country: None (occurrence: None)
  Receive Date: 20071203
  Receipt Date: 20071203
  Transmission Date: 20080405
  Serious: Yes (Hospitalization)
  Sender: FDA-Public Use
  Company Number: None

PATIENT
  Sex: Male
  Weight: 28.3 kg

DRUGS (2)
  1. FLUCONAZOLE [Suspect]
     Indication: ORAL CANDIDIASIS
     Dosage: 160MG (LOADING DOSE) ONE DOSE ORAL 80 MG (MAINTENANCE) DAILY X (3 DAYS) ORAL
     Route: 048
     Dates: start: 20071107
  2. FLUCONAZOLE [Suspect]
     Indication: ORAL CANDIDIASIS
     Dosage: 160MG (LOADING DOSE) ONE DOSE ORAL 80 MG (MAINTENANCE) DAILY X (3 DAYS) ORAL
     Route: 048
     Dates: start: 20071119

REACTIONS (2)
  - NEPHRITIS INTERSTITIAL [None]
  - PYELONEPHRITIS [None]
